FAERS Safety Report 13614938 (Version 1)
Quarter: 2017Q2

REPORT INFORMATION
  Report Type: Spontaneous
  Country: US (occurrence: US)
  Receive Date: 20170606
  Receipt Date: 20170606
  Transmission Date: 20170830
  Serious: No
  Sender: FDA-Public Use
  Company Number: US-009507513-1705USA012789

PATIENT
  Age: 45 Year
  Sex: Female

DRUGS (1)
  1. INTRON A [Suspect]
     Active Substance: INTERFERON ALFA-2B
     Indication: HEPATITIS C
     Dosage: 1.5 MILLION INTERNATIONAL UNITS (IU)/ML 3 TIMES A WEEK

REACTIONS (1)
  - Influenza like illness [Unknown]
